FAERS Safety Report 14014775 (Version 1)
Quarter: 2017Q3

REPORT INFORMATION
  Report Type: Spontaneous
  Country: US (occurrence: None)
  Receive Date: 20170927
  Receipt Date: 20170927
  Transmission Date: 20171128
  Serious: Yes (Death, Hospitalization)
  Sender: FDA-Public Use
  Company Number: None

PATIENT
  Age: 53 Year
  Sex: Male
  Weight: 97.98 kg

DRUGS (3)
  1. 5-FLUOROURACIL (5-FU) [Suspect]
     Active Substance: FLUOROURACIL
     Dates: end: 20170912
  2. LEUCOVORIN CALCIUM. [Concomitant]
     Active Substance: LEUCOVORIN CALCIUM
     Dates: end: 20170907
  3. ELOXATIN [Concomitant]
     Active Substance: OXALIPLATIN
     Dates: end: 20170907

REACTIONS (14)
  - Abdominal infection [None]
  - Aspiration [None]
  - Cardiac arrest [None]
  - Diarrhoea [None]
  - Enteritis [None]
  - Abdominal distension [None]
  - Colitis [None]
  - Respiratory distress [None]
  - Haemodynamic instability [None]
  - Metabolic acidosis [None]
  - Pyrexia [None]
  - Renal failure [None]
  - Lactic acidosis [None]
  - Pneumonia aspiration [None]

NARRATIVE: CASE EVENT DATE: 20170915
